FAERS Safety Report 20802738 (Version 1)
Quarter: 2022Q2

REPORT INFORMATION
  Report Type: Spontaneous
  Country: IT (occurrence: None)
  Receive Date: 20220509
  Receipt Date: 20220509
  Transmission Date: 20220721
  Serious: Yes (Other)
  Sender: FDA-Public Use
  Company Number: IT-ROCHE-3093246

PATIENT
  Age: 35 Year
  Sex: Female

DRUGS (2)
  1. RIVOTRIL [Suspect]
     Active Substance: CLONAZEPAM
     Indication: Headache
     Dosage: RIVOTRIL 2.5 MG/ML
     Route: 048
     Dates: start: 20220328, end: 20220328
  2. KEPPRA [Concomitant]
     Active Substance: LEVETIRACETAM
     Dosage: KEPPRA 750 MG
     Route: 065

REACTIONS (4)
  - Sopor [Recovering/Resolving]
  - Presyncope [Recovering/Resolving]
  - Intentional product misuse [Unknown]
  - Off label use [Unknown]

NARRATIVE: CASE EVENT DATE: 20220328
